FAERS Safety Report 11499710 (Version 1)
Quarter: 2015Q3

REPORT INFORMATION
  Report Type: Spontaneous
  Country: PL (occurrence: PL)
  Receive Date: 20150914
  Receipt Date: 20150914
  Transmission Date: 20151125
  Serious: Yes (Hospitalization)
  Sender: FDA-Public Use
  Company Number: PL-ROCHE-1632173

PATIENT
  Sex: Male

DRUGS (17)
  1. PEGINTRON [Suspect]
     Active Substance: PEGINTERFERON ALFA-2B
     Route: 065
     Dates: start: 201505, end: 20150803
  2. REBETOL [Suspect]
     Active Substance: RIBAVIRIN
     Route: 065
     Dates: start: 2013, end: 2013
  3. PEGASYS [Suspect]
     Active Substance: PEGINTERFERON ALFA-2A
     Indication: HEPATITIS C
     Route: 065
     Dates: start: 200704, end: 2007
  4. ETHAMSYLATE [Concomitant]
     Active Substance: ETHAMSYLATE
  5. COPEGUS [Suspect]
     Active Substance: RIBAVIRIN
     Indication: HEPATITIS C
     Route: 065
     Dates: start: 200704, end: 2007
  6. PEGINTRON [Suspect]
     Active Substance: PEGINTERFERON ALFA-2B
     Route: 065
     Dates: start: 2013, end: 2013
  7. COPEGUS [Suspect]
     Active Substance: RIBAVIRIN
     Route: 065
     Dates: start: 2007, end: 2008
  8. ALFAFERONE [Suspect]
     Active Substance: INTERFERON ALFA-N3
     Indication: HEPATITIS C
     Dosage: 3 MILLION TWICE DAILY
     Route: 065
     Dates: start: 200708
  9. FOLIC ACID. [Concomitant]
     Active Substance: FOLIC ACID
  10. PEGASYS [Suspect]
     Active Substance: PEGINTERFERON ALFA-2A
     Route: 065
     Dates: start: 20150217, end: 201505
  11. REBETOL [Suspect]
     Active Substance: RIBAVIRIN
     Route: 065
     Dates: start: 2011, end: 2011
  12. PEGINTRON [Suspect]
     Active Substance: PEGINTERFERON ALFA-2B
     Indication: HEPATITIS C
     Route: 065
     Dates: start: 2009, end: 2010
  13. PEGINTRON [Suspect]
     Active Substance: PEGINTERFERON ALFA-2B
     Route: 065
     Dates: start: 2011, end: 2011
  14. REBETOL [Suspect]
     Active Substance: RIBAVIRIN
     Indication: HEPATITIS C
     Route: 065
     Dates: start: 2009, end: 2010
  15. REBETOL [Suspect]
     Active Substance: RIBAVIRIN
     Route: 065
     Dates: start: 201505, end: 20150803
  16. COPEGUS [Suspect]
     Active Substance: RIBAVIRIN
     Route: 065
     Dates: start: 20150217, end: 201505
  17. SOVALDI [Suspect]
     Active Substance: SOFOSBUVIR
     Indication: HEPATITIS C
     Route: 065
     Dates: start: 20150217, end: 201505

REACTIONS (10)
  - Platelet count decreased [Unknown]
  - Haemochromatosis [Unknown]
  - Asthenia [Unknown]
  - Granulocyte count decreased [Unknown]
  - Aspartate aminotransferase increased [Unknown]
  - Nodule [Unknown]
  - Haemoglobin decreased [Unknown]
  - Alanine aminotransferase increased [Unknown]
  - Gamma-glutamyltransferase increased [Unknown]
  - Purpura [Unknown]
